FAERS Safety Report 7285805-4 (Version None)
Quarter: 2011Q1

REPORT INFORMATION
  Report Type: 
  Country: None (occurrence: None)
  Receive Date: 20110210
  Receipt Date: 20110128
  Transmission Date: 20110831
  Serious: Yes (Death)
  Sender: FDA-Public Use
  Company Number: US-ACTELION-A-US2011-44433

PATIENT

DRUGS (1)
  1. TRACLEER [Suspect]
     Route: 048

REACTIONS (1)
  - CARDIAC FAILURE CHRONIC [None]
